FAERS Safety Report 6074878-2 (Version None)
Quarter: 2009Q1

REPORT INFORMATION
  Report Type: 
  Country: None (occurrence: None)
  Receive Date: 20090210
  Receipt Date: 20090127
  Transmission Date: 20090719
  Serious: Yes (Death, Life-Threatening)
  Sender: FDA-Public Use
  Company Number: 1-17436333

PATIENT
  Sex: Male

DRUGS (2)
  1. WARFARIN SODIUM [Suspect]
     Dosage: 5-6MG DAILY, ORAL
     Route: 048
  2. DILITAZEM [Suspect]
     Dosage: 2 X 60 MG DILITAZEM, ORAL
     Route: 048

REACTIONS (4)
  - DRUG DISPENSING ERROR [None]
  - DRUG INTERACTION [None]
  - MEDICATION ERROR [None]
  - SUBDURAL HAEMATOMA [None]
